FAERS Safety Report 7868058-5 (Version None)
Quarter: 2011Q4

REPORT INFORMATION
  Report Type: 
  Country: None (occurrence: None)
  Receive Date: 20111028
  Receipt Date: 20111027
  Transmission Date: 20120403
  Serious: Yes (Death, Life-Threatening, Hospitalization)
  Sender: FDA-Public Use
  Company Number: DO-ROCHE-1007486

PATIENT
  Sex: Female

DRUGS (1)
  1. BONIVA [Suspect]
     Indication: OSTEOPOROSIS
     Route: 048
     Dates: start: 20110426

REACTIONS (4)
  - RIB FRACTURE [None]
  - PNEUMONIA [None]
  - PNEUMOTHORAX [None]
  - INJURY [None]
